FAERS Safety Report 10691194 (Version 2)
Quarter: 2015Q1

REPORT INFORMATION
  Report Type: Spontaneous
  Country: FR (occurrence: None)
  Receive Date: 20150102
  Receipt Date: 20150126
  Transmission Date: 20150720
  Serious: Yes (Hospitalization)
  Sender: FDA-Public Use
  Company Number: 2684506

PATIENT
  Age: 66 Year
  Sex: Male

DRUGS (6)
  1. GEMCITABINE ACCORD [Suspect]
     Active Substance: GEMCITABINE HYDROCHLORIDE
     Indication: CHEMOTHERAPY
     Dates: start: 20140708, end: 20140708
  2. (ACTISKENAN) [Concomitant]
  3. CARBOPLATIN. [Suspect]
     Active Substance: CARBOPLATIN
     Indication: CHEMOTHERAPY
     Dates: start: 20140708, end: 20140708
  4. (LYRICA) [Concomitant]
  5. ATARAX [Concomitant]
     Active Substance: HYDROXYZINE\HYDROXYZINE HYDROCHLORIDE
  6. (SKENAN) [Concomitant]

REACTIONS (10)
  - Shock [None]
  - Secondary immunodeficiency [None]
  - Hypoxia [None]
  - Somnolence [None]
  - Acid-base balance disorder mixed [None]
  - Staphylococcus test positive [None]
  - Acute kidney injury [None]
  - Febrile bone marrow aplasia [None]
  - Pancytopenia [None]
  - Hyperkalaemia [None]

NARRATIVE: CASE EVENT DATE: 20140720
